FAERS Safety Report 6102744-2 (Version None)
Quarter: 2009Q1

REPORT INFORMATION
  Report Type: 
  Country: None (occurrence: None)
  Receive Date: 20090304
  Receipt Date: 20090303
  Transmission Date: 20090719
  Serious: Yes (Hospitalization)
  Sender: FDA-Public Use
  Company Number: JP-B.I. PHARMACEUTICALS,INC./RIDGEFIELD-2009-BP-02230NB

PATIENT
  Age: 6 Decade
  Sex: Female

DRUGS (5)
  1. MICARDIS [Suspect]
     Indication: HYPERTENSION
     Route: 048
  2. LASIX [Concomitant]
     Route: 048
  3. ALOSITOL [Concomitant]
     Route: 048
  4. ONEALFA [Concomitant]
     Route: 048
  5. FUNGIZONE [Concomitant]
     Route: 048

REACTIONS (2)
  - RED BLOOD CELL COUNT DECREASED [None]
  - WHITE BLOOD CELL COUNT DECREASED [None]
